FAERS Safety Report 4675381-4 (Version None)
Quarter: 2005Q2

REPORT INFORMATION
  Report Type: 
  Country: None (occurrence: None)
  Receive Date: 20050527
  Receipt Date: 20050211
  Transmission Date: 20051028
  Serious: No
  Sender: FDA-Public Use
  Company Number: US-BRISTOL-MYERS SQUIBB COMPANY-12859443

PATIENT
  Age: 40 Year
  Sex: Female

DRUGS (3)
  1. ABILIFY [Suspect]
     Indication: BIPOLAR I DISORDER
     Route: 048
     Dates: start: 20020501
  2. DEPO-PROVERA [Concomitant]
  3. TYLENOL (CAPLET) [Concomitant]

REACTIONS (5)
  - BLADDER SPASM [None]
  - POLLAKIURIA [None]
  - PREGNANCY [None]
  - RESTLESS LEGS SYNDROME [None]
  - URINARY INCONTINENCE [None]
